FAERS Safety Report 10090989 (Version 1)
Quarter: 2014Q2

REPORT INFORMATION
  Report Type: Spontaneous
  Country: US (occurrence: US)
  Receive Date: 20140421
  Receipt Date: 20140421
  Transmission Date: 20141212
  Serious: No
  Sender: FDA-Public Use
  Company Number: US-009507513-1404USA009322

PATIENT
  Age: 32 Year
  Sex: Female

DRUGS (1)
  1. DULERA [Suspect]
     Indication: ASTHMA
     Dosage: 2 PUFFS TWICE A DAY
     Route: 055
     Dates: start: 201304

REACTIONS (3)
  - Hypersensitivity [Recovering/Resolving]
  - Circumstance or information capable of leading to medication error [Unknown]
  - Product quality issue [Unknown]
